FAERS Safety Report 25268626 (Version 1)
Quarter: 2025Q2

REPORT INFORMATION
  Report Type: Spontaneous
  Country: US (occurrence: None)
  Receive Date: 20250504
  Receipt Date: 20250504
  Transmission Date: 20250716
  Serious: Yes (Hospitalization)
  Sender: FDA-CTU
  Company Number: None

PATIENT
  Age: 61 Year
  Sex: Female
  Weight: 64.8 kg

DRUGS (3)
  1. SULFAMETHOXAZOLE\TRIMETHOPRIM [Suspect]
     Active Substance: SULFAMETHOXAZOLE\TRIMETHOPRIM
     Indication: Infection
     Dosage: 20 TABLET(S) TWICE A DAY ORAL
     Route: 048
     Dates: start: 20250430, end: 20250501
  2. ASPIRIN [Concomitant]
     Active Substance: ASPIRIN
  3. Herbal teas - chamomile and hibiscus [Concomitant]

REACTIONS (6)
  - Illness [None]
  - Nausea [None]
  - Vomiting [None]
  - Pyrexia [None]
  - Abdominal pain upper [None]
  - Syncope [None]

NARRATIVE: CASE EVENT DATE: 20250501
